FAERS Safety Report 4268112-3 (Version None)
Quarter: 2004Q1

REPORT INFORMATION
  Report Type: 
  Country: None (occurrence: None)
  Receive Date: 20040109
  Receipt Date: 20040109
  Transmission Date: 20041129
  Serious: No
  Sender: FDA-Public Use
  Company Number: None

PATIENT
  Age: 30 Year
  Sex: Female
  Weight: 58.9676 kg

DRUGS (3)
  1. CLINDAMYCIN 500 MG [Suspect]
     Indication: SINUSITIS
     Dosage: 500 MG 4 TIMES ORAL
     Route: 048
     Dates: start: 20031126, end: 20031205
  2. CLINDAMYCIN 500 MG [Suspect]
     Indication: TOOTH ABSCESS
     Dosage: 500 MG 4 TIMES ORAL
     Route: 048
     Dates: start: 20031126, end: 20031205
  3. CLINDAMYCIN 500 MG [Suspect]
     Indication: TOOTH ABSCESS
     Dosage: 500 MG 4 TIME ORAL
     Route: 048
     Dates: start: 20031230, end: 20040103

REACTIONS (8)
  - ABDOMINAL PAIN [None]
  - ABDOMINAL PAIN UPPER [None]
  - ASTHENIA [None]
  - CLOSTRIDIAL INFECTION [None]
  - DEHYDRATION [None]
  - DIARRHOEA [None]
  - NAUSEA [None]
  - WEIGHT DECREASED [None]
